FAERS Safety Report 6515740-8 (Version None)
Quarter: 2009Q4

REPORT INFORMATION
  Report Type: 
  Country: None (occurrence: None)
  Receive Date: 20091216
  Receipt Date: 20090316
  Transmission Date: 20100525
  Serious: Yes (Other)
  Sender: FDA-Public Use
  Company Number: WWISSUE-270

PATIENT
  Sex: Female

DRUGS (4)
  1. FLURAZEPAM [Suspect]
     Indication: PAIN
     Dosage: 1 CAP IN 6OZ WATER
     Dates: start: 20080301, end: 20090301
  2. FLURAZEPAM [Suspect]
  3. SYNTHROID [Concomitant]
  4. PREMARIN [Concomitant]

REACTIONS (1)
  - DRUG INEFFECTIVE [None]
